FAERS Safety Report 6718173-4 (Version None)
Quarter: 2010Q2

REPORT INFORMATION
  Report Type: 
  Country: None (occurrence: None)
  Receive Date: 20100504
  Receipt Date: 20100414
  Transmission Date: 20101027
  Serious: Yes (Other)
  Sender: FDA-Public Use
  Company Number: 232931J10USA

PATIENT
  Age: 51 Year
  Sex: Female

DRUGS (3)
  1. REBIF [Suspect]
     Indication: MULTIPLE SCLEROSIS
     Dosage: 44 MCG, 3 IN WK, SUBCUTANEOUS
     Route: 058
     Dates: start: 20090502
  2. XANAX [Concomitant]
  3. EFFEXOR [Concomitant]

REACTIONS (5)
  - CONDITION AGGRAVATED [None]
  - DEATH OF RELATIVE [None]
  - DEPRESSION [None]
  - SUICIDAL IDEATION [None]
  - URTICARIA [None]
